FAERS Safety Report 4784969-1 (Version None)
Quarter: 2005Q3

REPORT INFORMATION
  Report Type: 
  Country: None (occurrence: None)
  Receive Date: 20050930
  Receipt Date: 20050923
  Transmission Date: 20060218
  Serious: Yes (Hospitalization)
  Sender: FDA-Public Use
  Company Number: PHNU2005DE03284

PATIENT
  Sex: Female

DRUGS (8)
  1. SANDIMMUNE [Suspect]
     Indication: PROPHYLAXIS AGAINST TRANSPLANT REJECTION
  2. ACYCLOVIR [Concomitant]
  3. MERONEM [Concomitant]
  4. AMBISOME [Concomitant]
  5. PANTOZOL [Concomitant]
  6. TAVOR [Concomitant]
  7. VOMEX A ^YAMANOUCHI^ [Concomitant]
  8. HALDOL [Concomitant]

REACTIONS (2)
  - PAIN [None]
  - PALMAR ERYTHEMA [None]
